FAERS Safety Report 5904511-9 (Version None)
Quarter: 2008Q4

REPORT INFORMATION
  Report Type: 
  Country: None (occurrence: None)
  Receive Date: 20081001
  Receipt Date: 20080929
  Transmission Date: 20090506
  Serious: Yes (Other)
  Sender: FDA-Public Use
  Company Number: US-ELI_LILLY_AND_COMPANY-US200808003964

PATIENT
  Age: 80 Year
  Sex: Male

DRUGS (5)
  1. HUMULIN N [Suspect]
     Indication: DIABETES MELLITUS
     Dates: start: 19990101
  2. HUMULIN N [Suspect]
  3. ZOCOR [Concomitant]
  4. LOPRESSOR [Concomitant]
  5. LASIX [Concomitant]

REACTIONS (5)
  - BLINDNESS [None]
  - GLAUCOMA [None]
  - HYPOACUSIS [None]
  - MACULAR DEGENERATION [None]
  - MACULAR SCAR [None]
